FAERS Safety Report 5146204-4 (Version None)
Quarter: 2006Q4

REPORT INFORMATION
  Report Type: 
  Country: None (occurrence: None)
  Receive Date: 20061106
  Receipt Date: 20061106
  Transmission Date: 20070319
  Serious: Yes (Other)
  Sender: FDA-Public Use
  Company Number: None

PATIENT
  Age: 56 Year
  Sex: Female
  Weight: 52.1637 kg

DRUGS (1)
  1. TRIAMCINOLONE ACETONIDE [Suspect]
     Indication: DENTAL OPERATION
     Dosage: 1/4 INCH -^SMALL AMOUNTS^- 4 TIMES PER DAY TOP
     Route: 061
     Dates: start: 20061024, end: 20061104

REACTIONS (4)
  - COMPLICATIONS OF TRANSPLANT SURGERY [None]
  - IMPAIRED HEALING [None]
  - POST PROCEDURAL HAEMORRHAGE [None]
  - SWELLING [None]
